FAERS Safety Report 14653302 (Version 1)
Quarter: 2018Q1

REPORT INFORMATION
  Report Type: Spontaneous
  Country: FR (occurrence: FR)
  Receive Date: 20180319
  Receipt Date: 20180319
  Transmission Date: 20180509
  Serious: Yes (Other)
  Sender: FDA-Public Use
  Company Number: FR-MERCK KGAA-2044035

PATIENT
  Age: 39 Year
  Sex: Male

DRUGS (1)
  1. NOVOTHYROX [Suspect]
     Active Substance: LEVOTHYROXINE SODIUM
     Indication: PRODUCT USED FOR UNKNOWN INDICATION

REACTIONS (17)
  - Pain [Recovered/Resolved]
  - Insomnia [Recovering/Resolving]
  - Mood altered [Recovering/Resolving]
  - Asthenia [Recovering/Resolving]
  - Angina pectoris [Recovered/Resolved]
  - Fatigue [Recovering/Resolving]
  - Vertigo [Recovering/Resolving]
  - Gastrointestinal disorder [Recovering/Resolving]
  - Myalgia [Recovered/Resolved]
  - Hypoaesthesia [Recovering/Resolving]
  - Anxiety [Recovering/Resolving]
  - Nervousness [Recovering/Resolving]
  - Headache [Recovered/Resolved]
  - Dizziness [Recovering/Resolving]
  - Stress [Recovering/Resolving]
  - Loss of personal independence in daily activities [Recovering/Resolving]
  - Tremor [Recovering/Resolving]

NARRATIVE: CASE EVENT DATE: 20171017
